FAERS Safety Report 6247148-7 (Version None)
Quarter: 2009Q2

REPORT INFORMATION
  Report Type: 
  Country: None (occurrence: None)
  Receive Date: 20090624
  Receipt Date: 20090624
  Transmission Date: 20091009
  Serious: Yes (Life-Threatening, Disabling)
  Sender: FDA-Public Use
  Company Number: None

PATIENT
  Age: 61 Year
  Sex: Male

DRUGS (1)
  1. MORPHINE SULFATE [Suspect]
     Indication: CHEST PAIN
     Dosage: 4 MG SINGLE DOSE IV BOLUS
     Route: 040
     Dates: start: 20000101, end: 20080406

REACTIONS (1)
  - CARDIO-RESPIRATORY ARREST [None]
